FAERS Safety Report 21227890 (Version 5)
Quarter: 2024Q3

REPORT INFORMATION
  Report Type: Report from Study
  Country: US (occurrence: US)
  Receive Date: 20220818
  Receipt Date: 20240727
  Transmission Date: 20241017
  Serious: Yes (Hospitalization, Other)
  Sender: TAKEDA
  Company Number: US-TAKEDA-2022TUS056588

PATIENT
  Age: 46 Year
  Sex: Female
  Weight: 60.77 kg

DRUGS (8)
  1. LANADELUMAB [Suspect]
     Active Substance: LANADELUMAB
     Indication: Hereditary angioedema
     Dosage: UNK
     Route: 065
     Dates: start: 20220808
  2. LANADELUMAB [Suspect]
     Active Substance: LANADELUMAB
     Indication: Immune system disorder
     Dosage: 300 MILLIGRAM, Q2WEEKS
     Route: 058
     Dates: start: 20230224
  3. BYDUREON [Concomitant]
     Active Substance: EXENATIDE
     Dosage: UNK
     Route: 065
  4. TRULICITY [Concomitant]
     Active Substance: DULAGLUTIDE
     Dosage: UNK
     Route: 065
  5. FIRAZYR [Concomitant]
     Active Substance: ICATIBANT ACETATE
     Dosage: UNK
     Route: 065
  6. BERINERT [Concomitant]
     Active Substance: HUMAN C1-ESTERASE INHIBITOR
     Dosage: UNK
     Route: 065
  7. METFORMIN HYDROCHLORIDE [Concomitant]
     Active Substance: METFORMIN HYDROCHLORIDE
     Dosage: UNK
     Route: 065
  8. VITAMINS [Concomitant]
     Active Substance: VITAMINS
     Dosage: UNK
     Route: 065

REACTIONS (8)
  - Gastrointestinal disorder [Unknown]
  - Procedural complication [Unknown]
  - Hereditary angioedema [Not Recovered/Not Resolved]
  - Blood glucose abnormal [Unknown]
  - Feeling abnormal [Unknown]
  - Ligament sprain [Unknown]
  - Product dose omission issue [Unknown]
  - Human bite [Unknown]

NARRATIVE: CASE EVENT DATE: 20230824
